FAERS Safety Report 6615446-0 (Version None)
Quarter: 2010Q1

REPORT INFORMATION
  Report Type: 
  Country: None (occurrence: None)
  Receive Date: 20100305
  Receipt Date: 20100222
  Transmission Date: 20100710
  Serious: Yes (Death, Hospitalization, Other)
  Sender: FDA-Public Use
  Company Number: US-PFIZER INC-2009260305

PATIENT
  Sex: Female

DRUGS (21)
  1. LIPITOR [Suspect]
     Indication: BLOOD CHOLESTEROL INCREASED
     Dosage: 20 MG, 1X/DAY
     Route: 048
     Dates: start: 20040511
  2. LIPITOR [Suspect]
     Dosage: 40 MG, 1X/DAY AT NIGHT
     Route: 048
     Dates: start: 20050120
  3. ZESTRIL [Concomitant]
     Dosage: 5 MG, 2X/DAY
  4. ZESTRIL [Concomitant]
     Dosage: 10 MG, 1X/DAY
     Dates: start: 20040708
  5. PLAVIX [Concomitant]
     Dosage: 75 MG, 1X/DAY
  6. ACTOS [Concomitant]
     Dosage: 15 MG, 1X/DAY
  7. ACTOS [Concomitant]
     Dates: start: 20050120
  8. LASIX [Concomitant]
     Dosage: 80 MG, 1X/DAY
  9. CORDARONE [Concomitant]
     Dosage: FREQUENCY: 2X/DAY,
  10. ACETYLSALICYLIC ACID [Concomitant]
     Dosage: 81 MG, 1X/DAY
  11. HYDROXYZINE [Concomitant]
     Dosage: 25 MG, 1X/DAY
  12. PEPCID AC [Concomitant]
     Dosage: FREQUENCY: 2X/DAY,
  13. COMBIVENT [Concomitant]
     Dosage: FREQUENCY: 4X/DAY
  14. FLOVENT [Concomitant]
     Dosage: FREQUENCY: 4X/DAY
  15. ELAVIL [Concomitant]
     Dosage: 25 MG, 1X/DAY AT BEDTIME
  16. POTASSIUM [Concomitant]
     Dosage: 99 MEQ, 2X/DAY
  17. METHOCARBAMOL [Concomitant]
     Dosage: 500 MG, 2X/DAY
  18. CLONIDINE [Concomitant]
     Dosage: 0.1 MG, 2X/DAY
  19. VITAMIN D [Concomitant]
     Dosage: UNK
  20. SINEMET [Concomitant]
     Dosage: 25/100 TWICE DAILY
  21. NITROGLYCERIN [Concomitant]
     Indication: CHEST PAIN
     Dosage: AS NEEDED

REACTIONS (6)
  - CARDIAC FAILURE [None]
  - CARDIAC MURMUR [None]
  - CHEST PAIN [None]
  - CHRONIC OBSTRUCTIVE PULMONARY DISEASE [None]
  - DEATH [None]
  - RENAL FAILURE CHRONIC [None]
